FAERS Safety Report 12659461 (Version 1)
Quarter: 2016Q3

REPORT INFORMATION
  Report Type: Spontaneous
  Country: US (occurrence: US)
  Receive Date: 20160817
  Receipt Date: 20160817
  Transmission Date: 20161109
  Serious: Yes (Hospitalization, Other)
  Sender: FDA-Public Use
  Company Number: US-GLAXOSMITHKLINE-US2016113036

PATIENT
  Sex: Male

DRUGS (1)
  1. TANZEUM [Suspect]
     Active Substance: ALBIGLUTIDE
     Indication: DIABETES MELLITUS
     Dosage: 30 MG, WE
     Route: 042
     Dates: start: 201607

REACTIONS (6)
  - Infection [Recovered/Resolved]
  - Syncope [Recovered/Resolved]
  - Dehydration [Recovered/Resolved]
  - Abscess [Recovered/Resolved]
  - Hypotension [Recovered/Resolved]
  - Sepsis [Recovered/Resolved]

NARRATIVE: CASE EVENT DATE: 20160701
